FAERS Safety Report 13944855 (Version 1)
Quarter: 2017Q3

REPORT INFORMATION
  Report Type: Spontaneous
  Country: US (occurrence: US)
  Receive Date: 20170907
  Receipt Date: 20170907
  Transmission Date: 20171128
  Serious: No
  Sender: FDA-Public Use
  Company Number: US-ROCHE-1317514

PATIENT
  Sex: Female

DRUGS (4)
  1. TYLENOL #1 (UNITED STATES) [Concomitant]
  2. BENADRYL [Concomitant]
     Active Substance: DIPHENHYDRAMINE HYDROCHLORIDE
  3. RITUXAN [Suspect]
     Active Substance: RITUXIMAB
     Indication: PRODUCT USED FOR UNKNOWN INDICATION
     Route: 065
     Dates: start: 20131205
  4. AZASAN [Concomitant]
     Active Substance: AZATHIOPRINE

REACTIONS (2)
  - Vomiting [Unknown]
  - Hypersensitivity [Unknown]
